FAERS Safety Report 10206827 (Version 1)
Quarter: 2014Q2

REPORT INFORMATION
  Report Type: Spontaneous
  Country: US (occurrence: None)
  Receive Date: 20140528
  Receipt Date: 20140528
  Transmission Date: 20141212
  Serious: Yes (Life-Threatening, Hospitalization, Other)
  Sender: FDA-Public Use
  Company Number: None

PATIENT
  Age: 45 Year
  Sex: Male
  Weight: 97.07 kg

DRUGS (1)
  1. DEPO-TESTOSTERONE [Suspect]
     Indication: BLOOD TESTOSTERONE DECREASED
     Dosage: 1 ML EVERY 2 WEEKS EVERY 2 WEEKS INTO THE MUSCLE
     Route: 030
     Dates: start: 20050512, end: 20080215

REACTIONS (3)
  - Cerebrovascular accident [None]
  - Thrombosis [None]
  - Pulmonary thrombosis [None]
